FAERS Safety Report 6161286 (Version 10)
Quarter: 2013Q2

REPORT INFORMATION
  Report Type: Spontaneous
  Country: US (occurrence: US)
  Receive Date: 20061103
  Receipt Date: 20130422
  Transmission Date: 20140414
  Serious: Yes (Hospitalization, Other)
  Sender: FDA-Public Use
  Company Number: PHEH2006US13310

PATIENT
  Sex: Male

DRUGS (11)
  1. ZOMETA [Suspect]
     Dosage: 4 MG,
  2. WARFARIN [Concomitant]
  3. THALIDOMIDE [Concomitant]
  4. AMOXYCILLIN [Concomitant]
     Dosage: 1 G, BID
     Route: 048
  5. CLARITHROMYCIN [Concomitant]
     Dosage: 500 MG, BID
  6. CYANOCOBALAMIN [Concomitant]
  7. OMEPRAZOLE [Concomitant]
     Dosage: 20 MG, UNK
     Route: 048
  8. DOCUSATE [Concomitant]
  9. B12 ^RECIP^ [Concomitant]
  10. DEXAMETHASONE [Concomitant]
     Dosage: 4 MG, UNK
  11. COUMADINE [Concomitant]

REACTIONS (47)
  - Osteonecrosis of jaw [Unknown]
  - Injury [Unknown]
  - Pain [Unknown]
  - Anxiety [Unknown]
  - Toothache [Unknown]
  - Swelling face [Unknown]
  - Subcutaneous abscess [Unknown]
  - Bone pain [Unknown]
  - Plasma cell myeloma [Unknown]
  - Bone lesion [Unknown]
  - Osteoarthritis [Unknown]
  - Bone density decreased [Unknown]
  - Pulmonary mass [Unknown]
  - Pneumonia [Unknown]
  - Pleural effusion [Unknown]
  - Pulmonary oedema [Unknown]
  - Visual acuity reduced [Unknown]
  - Vision blurred [Unknown]
  - Metastases to bone [Unknown]
  - Intervertebral disc degeneration [Unknown]
  - Stomatitis [Unknown]
  - Impaired healing [Unknown]
  - Purulence [Unknown]
  - Jaw fracture [Unknown]
  - Pain in jaw [Unknown]
  - Hypoaesthesia oral [Unknown]
  - Gastrointestinal haemorrhage [Unknown]
  - Arthralgia [Unknown]
  - Anaemia [Unknown]
  - Bone neoplasm [Unknown]
  - Back pain [Unknown]
  - Musculoskeletal pain [Unknown]
  - Spinal fracture [Unknown]
  - Osteopenia [Unknown]
  - Osteosclerosis [Unknown]
  - Pseudomonas infection [Unknown]
  - Blindness [Unknown]
  - Deep vein thrombosis [Unknown]
  - Haematospermia [Unknown]
  - Anisocytosis [Unknown]
  - Microcytic anaemia [Unknown]
  - Groin pain [Unknown]
  - Coagulopathy [Unknown]
  - Gait disturbance [Unknown]
  - Intervertebral disc space narrowing [Unknown]
  - Spinal osteoarthritis [Unknown]
  - Neck pain [Recovered/Resolved]
